FAERS Safety Report 23438198 (Version 1)
Quarter: 2024Q1

REPORT INFORMATION
  Report Type: Spontaneous
  Country: US (occurrence: US)
  Receive Date: 20240124
  Receipt Date: 20240124
  Transmission Date: 20240410
  Serious: No
  Sender: FDA-Public Use
  Company Number: US-PERRIGO-23US002555

PATIENT
  Age: 76 Year
  Sex: Male
  Weight: 88.435 kg

DRUGS (4)
  1. IBUPROFEN AND DIPHENHYDRAMINE CITRATE [Suspect]
     Active Substance: DIPHENHYDRAMINE CITRATE\IBUPROFEN
     Indication: Insomnia
     Dosage: 2 TABLETS, NIGHTLY
     Route: 048
     Dates: start: 202209, end: 20230221
  2. DILTIAZEM [Concomitant]
     Active Substance: DILTIAZEM
     Indication: Hypertension
     Dosage: UNKNOWN, UNKNOWN
     Route: 065
  3. LOSARTAN [Concomitant]
     Active Substance: LOSARTAN
     Indication: Hypertension
     Dosage: UNKNOWN, PRN
     Route: 065
  4. IBUPROFEN [Concomitant]
     Active Substance: IBUPROFEN
     Indication: Neuralgia
     Dosage: 600 TO 800 MG, NIGHTLY
     Route: 065

REACTIONS (2)
  - Therapeutic product effect delayed [Unknown]
  - Incorrect product administration duration [Unknown]

NARRATIVE: CASE EVENT DATE: 20220901
